FAERS Safety Report 6154803-6 (Version None)
Quarter: 2009Q2

REPORT INFORMATION
  Report Type: 
  Country: None (occurrence: None)
  Receive Date: 20090414
  Receipt Date: 20090407
  Transmission Date: 20091009
  Serious: Yes (Hospitalization)
  Sender: FDA-Public Use
  Company Number: PHHY2009JP13513

PATIENT
  Sex: Female

DRUGS (6)
  1. DIOVAN [Suspect]
     Dosage: 80 MG DAILY
     Route: 048
     Dates: start: 20070925, end: 20080615
  2. AMLODIN [Concomitant]
     Indication: HYPERTENSION
     Dosage: 2.5 MG
     Route: 048
     Dates: start: 20080515, end: 20080611
  3. NORVASC [Concomitant]
     Indication: HYPERTENSION
     Dosage: 5 MG
     Route: 048
     Dates: start: 20080611, end: 20080615
  4. LIPITOR [Concomitant]
     Dosage: 10 MG
     Route: 048
     Dates: start: 20030925, end: 20071124
  5. ALLELOCK [Concomitant]
     Dosage: 10 MG
     Route: 048
     Dates: start: 20030213, end: 20071124
  6. LORCAM [Concomitant]
     Dosage: 12 MG
     Route: 048
     Dates: start: 20021107, end: 20070618

REACTIONS (6)
  - ABDOMINAL NEOPLASM [None]
  - CHOLELITHIASIS [None]
  - CYTOREDUCTIVE SURGERY [None]
  - INTESTINAL OBSTRUCTION [None]
  - JAUNDICE CHOLESTATIC [None]
  - METASTASES TO ABDOMINAL CAVITY [None]
